FAERS Safety Report 9404832 (Version 1)
Quarter: 2013Q3

REPORT INFORMATION
  Report Type: Report from Study
  Country: JP (occurrence: JP)
  Receive Date: 20130717
  Receipt Date: 20130717
  Transmission Date: 20140515
  Serious: Yes (Other)
  Sender: FDA-Public Use
  Company Number: JP-JNJFOC-20111211603

PATIENT
  Age: 53 Year
  Sex: Male
  Weight: 85 kg

DRUGS (8)
  1. STELARA [Suspect]
     Indication: PSORIASIS
     Route: 058
     Dates: start: 20110830, end: 20110927
  2. LIPITOR [Concomitant]
     Indication: HYPERLIPIDAEMIA
     Route: 048
     Dates: start: 20081029
  3. URINORM [Concomitant]
     Indication: HYPERURICAEMIA
     Route: 048
     Dates: start: 20081224
  4. BEZATOL SR [Concomitant]
     Indication: HYPERLIPIDAEMIA
     Route: 048
     Dates: start: 20100907
  5. AMLODIPINE BESILATE [Concomitant]
     Indication: HYPERTENSION
     Route: 048
     Dates: start: 20110104
  6. DERMOVATE [Concomitant]
     Indication: PSORIASIS
  7. PETROLATUM SALICYLATE [Concomitant]
     Indication: PSORIASIS
  8. TACALCITOL [Concomitant]
     Indication: PSORIASIS

REACTIONS (4)
  - Rash [Recovered/Resolved]
  - Pruritus [Recovered/Resolved]
  - Quality of life decreased [Unknown]
  - Eosinophilia [Recovered/Resolved]
